FAERS Safety Report 4501684-X (Version None)
Quarter: 2004Q4

REPORT INFORMATION
  Report Type: 
  Country: None (occurrence: None)
  Receive Date: 20041109
  Receipt Date: 20041026
  Transmission Date: 20050328
  Serious: No
  Sender: FDA-Public Use
  Company Number: 2004AC00675

PATIENT
  Age: 55 Year
  Sex: Male
  Weight: 70 kg

DRUGS (9)
  1. SEROQUEL [Suspect]
     Dosage: 200 MG QID PO
     Route: 048
     Dates: start: 20040501, end: 20040901
  2. SEROQUEL [Suspect]
     Dosage: 200 MG QID PO
     Route: 048
     Dates: start: 20040901
  3. EFFEXOR [Concomitant]
  4. NO MATCH [Concomitant]
  5. MANIPREX [Concomitant]
  6. ASAFLOW [Concomitant]
  7. TRAZOLAN [Concomitant]
  8. LORAMET [Concomitant]
  9. LANTUS [Concomitant]

REACTIONS (3)
  - CONDITION AGGRAVATED [None]
  - DIABETES MELLITUS [None]
  - FATIGUE [None]
